FAERS Safety Report 6158618-4 (Version None)
Quarter: 2009Q2

REPORT INFORMATION
  Report Type: 
  Country: None (occurrence: None)
  Receive Date: 20090417
  Receipt Date: 20090409
  Transmission Date: 20091009
  Serious: Yes (Other)
  Sender: FDA-Public Use
  Company Number: US-AVENTIS-200913101US

PATIENT
  Sex: Female

DRUGS (2)
  1. ALLEGRA [Suspect]
     Dosage: DOSE: UNK
     Dates: start: 20080501
  2. ALLEGRA [Suspect]
     Dosage: DOSE: 1 TEASPOON
     Dates: start: 20090301

REACTIONS (1)
  - HALLUCINATION, AUDITORY [None]
